FAERS Safety Report 4805259-4 (Version None)
Quarter: 2005Q4

REPORT INFORMATION
  Report Type: 
  Country: None (occurrence: None)
  Receive Date: 20051020
  Receipt Date: 20050926
  Transmission Date: 20060501
  Serious: Yes (Death, Hospitalization)
  Sender: FDA-Public Use
  Company Number: FR-MERCK-0509FRA00077

PATIENT
  Age: 80 Year
  Sex: Male
  Weight: 75 kg

DRUGS (10)
  1. MAGNESIUM ASPARTATE [Suspect]
     Route: 048
     Dates: end: 20050822
  2. INDAPAMIDE [Concomitant]
     Route: 048
  3. LORAZEPAM [Concomitant]
     Route: 048
  4. ASPIRIN LYSINE [Concomitant]
     Route: 048
     Dates: end: 20050822
  5. ASPIRIN LYSINE [Concomitant]
     Route: 048
     Dates: start: 20050822
  6. URAPIDIL [Concomitant]
     Route: 048
  7. PROSCAR [Suspect]
     Route: 048
     Dates: end: 20050822
  8. BECLOMETHASONE DIPROPIONATE [Concomitant]
     Route: 065
  9. ALBUTEROL SULFATE [Concomitant]
     Route: 065
  10. QUINAPRIL HYDROCHLORIDE [Concomitant]
     Route: 048

REACTIONS (2)
  - DEATH [None]
  - ERYTHEMA NODOSUM [None]
